FAERS Safety Report 13881514 (Version 1)
Quarter: 2017Q3

REPORT INFORMATION
  Report Type: Spontaneous
  Country: US (occurrence: US)
  Receive Date: 20170815
  Receipt Date: 20170815
  Transmission Date: 20171127
  Serious: No
  Sender: FDA-Public Use
  Company Number: None

PATIENT
  Age: 59 Year
  Sex: Female
  Weight: 76.5 kg

DRUGS (16)
  1. ADDERALL [Concomitant]
     Active Substance: AMPHETAMINE ASPARTATE\AMPHETAMINE SULFATE\DEXTROAMPHETAMINE SACCHARATE\DEXTROAMPHETAMINE SULFATE
  2. UBIQUINOL [Concomitant]
     Active Substance: UBIQUINOL
  3. C [Concomitant]
  4. PROBIOTIC [Concomitant]
     Active Substance: PROBIOTICS NOS
  5. TRINTELLIX [Suspect]
     Active Substance: VORTIOXETINE HYDROBROMIDE
     Indication: DEPRESSION
     Dosage: ?          QUANTITY:2 TABLET(S);?
     Route: 048
     Dates: start: 20170704, end: 20170725
  6. SIMVASTATIN. [Concomitant]
     Active Substance: SIMVASTATIN
  7. OMEGA3-6-9 [Concomitant]
  8. TRINTELLIX [Suspect]
     Active Substance: VORTIOXETINE HYDROBROMIDE
     Indication: INSOMNIA
     Dosage: ?          QUANTITY:2 TABLET(S);?
     Route: 048
     Dates: start: 20170704, end: 20170725
  9. TRIAMTERENE HTC [Concomitant]
  10. SELENIUM [Concomitant]
     Active Substance: SELENIUM
  11. VITAMIN D3 [Concomitant]
     Active Substance: CHOLECALCIFEROL
  12. MELATONIN [Concomitant]
     Active Substance: MELATONIN
  13. AMLODIPINE [Concomitant]
     Active Substance: AMLODIPINE BESYLATE
  14. MAGNESIUM [Concomitant]
     Active Substance: MAGNESIUM
  15. BUPROPION. [Concomitant]
     Active Substance: BUPROPION
  16. MK7 [Concomitant]

REACTIONS (2)
  - Pruritus [None]
  - Nausea [None]

NARRATIVE: CASE EVENT DATE: 20170704
